FAERS Safety Report 22239218 (Version 1)
Quarter: 2023Q2

REPORT INFORMATION
  Report Type: Spontaneous
  Country: US (occurrence: US)
  Receive Date: 20230421
  Receipt Date: 20230421
  Transmission Date: 20230721
  Serious: No
  Sender: FDA-Public Use
  Company Number: US-ALLERGAN-2223576US

PATIENT
  Age: 74 Year
  Sex: Female
  Weight: 150 kg

DRUGS (10)
  1. REFRESH PLUS [Suspect]
     Active Substance: CARBOXYMETHYLCELLULOSE SODIUM
     Indication: Dry eye
     Dosage: 1 GTT, QPM
     Route: 047
     Dates: start: 2012
  2. RESTASIS [Suspect]
     Active Substance: CYCLOSPORINE
     Indication: Dry eye
     Dosage: 2 DF, QD
     Route: 047
  3. LATANOPROST [Concomitant]
     Active Substance: LATANOPROST
     Indication: Glaucoma
     Dosage: UNK
  4. OLOPATADINE [Concomitant]
     Active Substance: OLOPATADINE
     Indication: Eye allergy
     Dosage: UNK
  5. FISH OIL [Concomitant]
     Active Substance: FISH OIL
     Indication: Dry eye
     Dosage: UNK
  6. ZADITOR [Concomitant]
     Active Substance: KETOTIFEN FUMARATE
     Indication: Dry eye
     Dosage: UNK
  7. ZYRTEC [Concomitant]
     Active Substance: CETIRIZINE HYDROCHLORIDE
     Indication: Eye pruritus
     Dosage: UNK
  8. MODERNA COVID-19 VACCINE [Concomitant]
     Active Substance: ELASOMERAN
     Indication: COVID-19 immunisation
     Dosage: UNK (BOOSTER )
     Route: 030
     Dates: start: 20211110, end: 20211110
  9. MODERNA COVID-19 VACCINE [Concomitant]
     Active Substance: ELASOMERAN
     Dosage: UNK
     Route: 030
     Dates: start: 20210510, end: 20210510
  10. MODERNA COVID-19 VACCINE [Concomitant]
     Active Substance: ELASOMERAN
     Dosage: UNK, SINGLE
     Route: 030
     Dates: start: 20210412, end: 20210412

REACTIONS (3)
  - Expired product administered [Unknown]
  - Foreign body sensation in eyes [Not Recovered/Not Resolved]
  - Eye pruritus [Unknown]
